FAERS Safety Report 20938688 (Version 2)
Quarter: 2022Q3

REPORT INFORMATION
  Report Type: Spontaneous
  Country: FR (occurrence: FR)
  Receive Date: 20220609
  Receipt Date: 20220720
  Transmission Date: 20221027
  Serious: Yes (Death)
  Sender: FDA-Public Use
  Company Number: FR-Merz Pharmaceuticals GmbH-22-01581

PATIENT
  Age: 17 Year
  Sex: Male
  Weight: 45 kg

DRUGS (10)
  1. XEOMIN [Suspect]
     Active Substance: INCOBOTULINUMTOXINA
     Indication: Salivary hypersecretion
     Dates: start: 20220329, end: 20220329
  2. BOTOX [Concomitant]
     Active Substance: ONABOTULINUMTOXINA
     Indication: Muscle spasticity
  3. BOTOX [Concomitant]
     Active Substance: ONABOTULINUMTOXINA
  4. KEPPRA [Concomitant]
     Active Substance: LEVETIRACETAM
  5. RIVOTRIL [Concomitant]
     Active Substance: CLONAZEPAM
  6. SABRIL [Concomitant]
     Active Substance: VIGABATRIN
  7. XENAZINE [Concomitant]
     Active Substance: TETRABENAZINE
  8. ARTANE [Concomitant]
     Active Substance: TRIHEXYPHENIDYL HYDROCHLORIDE
  9. ERYTHROMYCIN [Concomitant]
     Active Substance: ERYTHROMYCIN
  10. CIMETIDINE [Concomitant]
     Active Substance: CIMETIDINE

REACTIONS (5)
  - Respiratory arrest [Fatal]
  - Acute respiratory failure [Fatal]
  - Respiratory tract infection [Fatal]
  - Increased viscosity of upper respiratory secretion [Unknown]
  - Underdose [Unknown]

NARRATIVE: CASE EVENT DATE: 20220101
